FAERS Safety Report 7876106-1 (Version None)
Quarter: 2011Q4

REPORT INFORMATION
  Report Type: 
  Country: None (occurrence: None)
  Receive Date: 20111031
  Receipt Date: 20111025
  Transmission Date: 20120403
  Serious: Yes (Other)
  Sender: FDA-Public Use
  Company Number: US-JNJFOC-20111011136

PATIENT
  Sex: Female

DRUGS (1)
  1. DOXORUBICIN HCL [Suspect]
     Indication: UTERINE CANCER
     Route: 042
     Dates: end: 20110301

REACTIONS (3)
  - ASCITES [None]
  - OFF LABEL USE [None]
  - ABDOMINAL MASS [None]
